FAERS Safety Report 8403279-4 (Version None)
Quarter: 2012Q2

REPORT INFORMATION
  Report Type: 
  Country: None (occurrence: None)
  Receive Date: 20120601
  Receipt Date: 20120530
  Transmission Date: 20120825
  Serious: Yes (Hospitalization, Other)
  Sender: FDA-Public Use
  Company Number: FR-ROCHE-1029278

PATIENT
  Sex: Male
  Weight: 50 kg

DRUGS (12)
  1. EUPRESSYL [Concomitant]
     Route: 048
     Dates: start: 20100809
  2. PREDNISONE TAB [Concomitant]
     Route: 048
     Dates: start: 20101019
  3. ATORVASTATIN [Concomitant]
     Route: 048
     Dates: start: 20111206
  4. TACROLIMUS [Suspect]
     Indication: TRANSPLANT REJECTION
     Route: 048
     Dates: start: 20100903
  5. MIRCERA [Suspect]
     Indication: NEPHROGENIC ANAEMIA
  6. CELLCEPT [Suspect]
     Indication: TRANSPLANT REJECTION
     Route: 048
     Dates: start: 20100809
  7. INSULIN NOVOMIX [Concomitant]
     Route: 058
     Dates: start: 20101019
  8. OMEPRAZOLE [Concomitant]
     Route: 048
     Dates: start: 20101019
  9. FOLIC ACID [Concomitant]
     Route: 048
     Dates: start: 20111206
  10. BACTRIM [Concomitant]
     Dates: start: 20100809
  11. RAMIPRIL [Concomitant]
     Route: 048
     Dates: start: 20111206
  12. AMLODIPINE BESYLATE [Concomitant]
     Route: 048
     Dates: start: 20101019

REACTIONS (2)
  - ANAEMIA [None]
  - BICYTOPENIA [None]
